FAERS Safety Report 14452851 (Version 1)
Quarter: 2018Q1

REPORT INFORMATION
  Report Type: Spontaneous
  Country: US (occurrence: US)
  Receive Date: 20180129
  Receipt Date: 20180129
  Transmission Date: 20180509
  Serious: No
  Sender: FDA-Public Use
  Company Number: US-TEVA-815504ACC

PATIENT
  Sex: Male

DRUGS (1)
  1. FLUDROCORTISONE ACETATE. [Suspect]
     Active Substance: FLUDROCORTISONE ACETATE
     Indication: HYPOTENSION
     Dates: start: 20170918

REACTIONS (2)
  - Hypertension [Unknown]
  - Drug prescribing error [Unknown]
